FAERS Safety Report 16531915 (Version 2)
Quarter: 2019Q3

REPORT INFORMATION
  Report Type: Spontaneous
  Country: DE (occurrence: DE)
  Receive Date: 20190704
  Receipt Date: 20190911
  Transmission Date: 20191004
  Serious: Yes (Congenital Anomaly, Other)
  Sender: FDA-Public Use
  Company Number: DE-AUROBINDO-AUR-APL-2019-037290

PATIENT
  Age: 9 Month
  Sex: Male
  Weight: 3.6 kg

DRUGS (3)
  1. VIMPAT [Suspect]
     Active Substance: LACOSAMIDE
     Indication: EPILEPSY
     Dosage: 200 MILLIGRAM, ONCE A DAY (100 MG, 2X/DAY (BID))
     Route: 064
     Dates: start: 200911, end: 20100811
  2. LAMOTRIGINE. [Suspect]
     Active Substance: LAMOTRIGINE
     Indication: EPILEPSY
     Dosage: (3)ONCE A DAY (225-225-250MG)
     Route: 064
     Dates: start: 20091111, end: 20100811
  3. FOLIC ACID. [Concomitant]
     Active Substance: FOLIC ACID
     Indication: PROPHYLAXIS OF NEURAL TUBE DEFECT
     Dosage: 5 [MG/D ]/ ALSO PRECONCEPTIONAL
     Route: 064
     Dates: start: 200911

REACTIONS (5)
  - Bradycardia neonatal [Recovered/Resolved]
  - Coarctation of the aorta [Unknown]
  - Atrial septal defect [Unknown]
  - Maternal exposure during pregnancy [Unknown]
  - Hyperbilirubinaemia [Unknown]

NARRATIVE: CASE EVENT DATE: 200911
